FAERS Safety Report 11349425 (Version 1)
Quarter: 2015Q3

REPORT INFORMATION
  Report Type: Spontaneous
  Country: US (occurrence: None)
  Receive Date: 20150805
  Receipt Date: 20150805
  Transmission Date: 20151125
  Serious: Yes (Other)
  Sender: FDA-Public Use
  Company Number: IPC201507-000493

PATIENT
  Sex: Female
  Weight: 79.37 kg

DRUGS (1)
  1. PROPRANOLOL HYDROCHLORIDE (PROPRANOLOL HYDROCHLORIDE) (PROPRANOLOL HYDROCHLORIDE) [Suspect]
     Active Substance: PROPRANOLOL HYDROCHLORIDE
     Indication: FAMILIAL TREMOR
     Route: 048
     Dates: start: 201503, end: 201503

REACTIONS (9)
  - Gastrointestinal disorder [None]
  - Renal pain [None]
  - Vomiting [None]
  - Facial pain [None]
  - Hyperhidrosis [None]
  - Abdominal pain upper [None]
  - Burn oral cavity [None]
  - Pain [None]
  - Mouth haemorrhage [None]
